FAERS Safety Report 4412330-8 (Version None)
Quarter: 2004Q2

REPORT INFORMATION
  Report Type: 
  Country: None (occurrence: None)
  Receive Date: 20040630
  Receipt Date: 20040331
  Transmission Date: 20050107
  Serious: No
  Sender: FDA-Public Use
  Company Number: 04P-163-0252321-00

PATIENT
  Age: 54 Year
  Sex: Female
  Weight: 77.1115 kg

DRUGS (9)
  1. HUMIRA [Suspect]
     Indication: RHEUMATOID ARTHRITIS
     Dosage: 40 MG, 1 IN 2 WK, SUBCUTANEOUS
     Route: 058
     Dates: start: 20040220
  2. LANSOPRAZOLE [Suspect]
     Indication: RHEUMATOID ARTHRITIS
     Dosage: ONE CARD PER WEEK, PER ORAL
     Route: 048
     Dates: start: 20040224
  3. NAPROXEN [Suspect]
     Indication: RHEUMATOID ARTHRITIS
     Dosage: ONE CARD PER WEEK, PER ORAL
     Route: 048
     Dates: start: 20040224
  4. AMITRIPTYLINE HCL [Concomitant]
  5. LEVOTHYROXINE SODIUM [Concomitant]
  6. ESTRATEST H.S. [Concomitant]
  7. TOCOPHEROL CONCENTRATE CAP [Concomitant]
  8. PYRIDOXINE HYDROCHLORIDE [Concomitant]
  9. CITRACAL + D [Concomitant]

REACTIONS (3)
  - BURNING SENSATION [None]
  - PRURITUS [None]
  - RASH MACULO-PAPULAR [None]
